FAERS Safety Report 8549483 (Version 3)
Quarter: 2013Q1

REPORT INFORMATION
  Report Type: Spontaneous
  Country: JP (occurrence: JP)
  Receive Date: 20120507
  Receipt Date: 20130102
  Transmission Date: 20140127
  Serious: Yes (Hospitalization)
  Sender: FDA-Public Use
  Company Number: JP-ROCHE-1063644

PATIENT
  Sex: Male
  Weight: 65 kg

DRUGS (18)
  1. ACTEMRA [Suspect]
     Indication: STILL^S DISEASE ADULT ONSET
     Route: 041
     Dates: start: 20110628, end: 20110721
  2. ACTEMRA [Suspect]
     Indication: STILL^S DISEASE ADULT ONSET
     Route: 041
     Dates: start: 20110818, end: 20120312
  3. PREDONINE [Concomitant]
     Indication: STILL^S DISEASE ADULT ONSET
     Route: 048
     Dates: start: 20100415, end: 20100812
  4. PREDONINE [Concomitant]
     Indication: STILL^S DISEASE ADULT ONSET
     Route: 048
     Dates: start: 20100813, end: 20100909
  5. PREDONINE [Concomitant]
     Indication: STILL^S DISEASE ADULT ONSET
     Route: 048
     Dates: start: 20100910, end: 20100923
  6. PREDONINE [Concomitant]
     Indication: STILL^S DISEASE ADULT ONSET
     Route: 048
     Dates: start: 20100924, end: 20101028
  7. PREDONINE [Concomitant]
     Indication: STILL^S DISEASE ADULT ONSET
     Route: 048
     Dates: start: 20101029
  8. LOXONIN [Concomitant]
     Indication: STILL^S DISEASE ADULT ONSET
     Route: 048
  9. MAGMITT [Concomitant]
     Indication: CONSTIPATION
     Route: 048
  10. OMEPRAL [Concomitant]
     Indication: PROPHYLAXIS AGAINST GASTROINTESTINAL ULCER
     Route: 048
  11. BAKTAR [Concomitant]
     Indication: ANTIFUNGAL PROPHYLAXIS
     Dosage: 1DF 2/DAY
     Route: 048
  12. BONOTEO [Concomitant]
     Indication: PROPHYLAXIS
     Route: 048
  13. BENZALIN [Concomitant]
     Indication: BIPOLAR I DISORDER
     Route: 048
  14. RHYTHMY [Concomitant]
     Indication: BIPOLAR I DISORDER
     Route: 048
  15. DEPAKENE-R [Concomitant]
     Indication: BIPOLAR I DISORDER
     Route: 048
  16. TEGRETOL [Concomitant]
     Indication: BIPOLAR I DISORDER
     Route: 048
  17. LIMAS [Concomitant]
     Indication: BIPOLAR I DISORDER
     Route: 048
  18. DEPAKENE [Concomitant]
     Indication: BIPOLAR I DISORDER
     Route: 048

REACTIONS (5)
  - Cardiac failure [Recovering/Resolving]
  - Atrial fibrillation [Recovering/Resolving]
  - Lumbar spinal stenosis [Unknown]
  - Cardiomyopathy [Unknown]
  - Spinal column stenosis [Unknown]
